FAERS Safety Report 13138594 (Version 1)
Quarter: 2017Q1

REPORT INFORMATION
  Report Type: Spontaneous
  Country: US (occurrence: US)
  Receive Date: 20170123
  Receipt Date: 20170123
  Transmission Date: 20170428
  Serious: No
  Sender: FDA-Public Use
  Company Number: None

PATIENT
  Age: 69 Year
  Sex: Female
  Weight: 58.97 kg

DRUGS (15)
  1. FUROSEMIDE. [Concomitant]
     Active Substance: FUROSEMIDE
  2. COMBIVENT [Concomitant]
     Active Substance: ALBUTEROL SULFATE\IPRATROPIUM BROMIDE
  3. PACEMAKER [Concomitant]
  4. DIGOXIN. [Concomitant]
     Active Substance: DIGOXIN
  5. ASPIRIN. [Concomitant]
     Active Substance: ASPIRIN
  6. LATUDA [Suspect]
     Active Substance: LURASIDONE HYDROCHLORIDE
     Indication: BIPOLAR DISORDER
     Dosage: 1 PILL WITH MEAL, MOUTH?
     Route: 048
     Dates: start: 20161007, end: 20161220
  7. LEVOXYL [Concomitant]
     Active Substance: LEVOTHYROXINE SODIUM
  8. POTASSIUM [Concomitant]
     Active Substance: POTASSIUM
  9. ADVIAR [Concomitant]
  10. LISINOPRIL. [Concomitant]
     Active Substance: LISINOPRIL
  11. ATENOLOL. [Concomitant]
     Active Substance: ATENOLOL
  12. SIMVASTATIN. [Concomitant]
     Active Substance: SIMVASTATIN
  13. DIABETES DEVICE [Concomitant]
  14. MILK OF MAGNESIA [Concomitant]
     Active Substance: MAGNESIUM HYDROXIDE
  15. EXCEDRIN [Concomitant]
     Active Substance: ACETAMINOPHEN\ASPIRIN\CAFFEINE

REACTIONS (3)
  - Tardive dyskinesia [None]
  - Drug ineffective [None]
  - Muscle spasms [None]

NARRATIVE: CASE EVENT DATE: 20161216
